FAERS Safety Report 17088219 (Version 1)
Quarter: 2019Q4

REPORT INFORMATION
  Report Type: Spontaneous
  Country: SE (occurrence: SE)
  Receive Date: 20191128
  Receipt Date: 20191128
  Transmission Date: 20200122
  Serious: Yes (Hospitalization)
  Sender: FDA-Public Use
  Company Number: SE-PFIZER INC-2019510829

PATIENT
  Sex: Female

DRUGS (4)
  1. CITODON [Suspect]
     Active Substance: ACETAMINOPHEN\CODEINE PHOSPHATE
     Dosage: 4 PIECES
     Route: 048
     Dates: start: 20180612, end: 20180612
  2. THERALEN [Suspect]
     Active Substance: TRIMEPRAZINE
     Dosage: 10 ML, UNK
     Route: 048
     Dates: start: 20180612, end: 20180612
  3. LERGIGAN (PROMETHAZINE HYDROCHLORIDE) [Suspect]
     Active Substance: PROMETHAZINE HYDROCHLORIDE
     Dosage: 10-15 TABLETS
     Route: 048
     Dates: start: 20180612, end: 20180612
  4. XANOR [Suspect]
     Active Substance: ALPRAZOLAM
     Dosage: SINGLE
     Route: 048
     Dates: start: 20180612, end: 20180612

REACTIONS (4)
  - Somnolence [Unknown]
  - Intentional self-injury [Unknown]
  - Dysarthria [Unknown]
  - Intentional overdose [Unknown]

NARRATIVE: CASE EVENT DATE: 20180612
